FAERS Safety Report 4412311-4 (Version None)
Quarter: 2004Q3

REPORT INFORMATION
  Report Type: 
  Country: None (occurrence: None)
  Receive Date: 20040730
  Receipt Date: 20040602
  Transmission Date: 20050211
  Serious: Yes (Hospitalization)
  Sender: FDA-Public Use
  Company Number: GB-MERCK-0406GBR00036

PATIENT
  Age: 66 Year
  Sex: Female
  Weight: 94 kg

DRUGS (5)
  1. BUDESONIDE AND FORMOTEROL FUMARATE [Concomitant]
     Indication: ASTHMA
     Route: 065
     Dates: start: 20031020
  2. CANDESARTAN [Concomitant]
     Indication: BLOOD PRESSURE ABNORMAL
     Route: 065
     Dates: start: 20000124
  3. ZETIA [Suspect]
     Indication: HYPERCHOLESTEROLAEMIA
     Route: 048
     Dates: start: 20040501, end: 20040524
  4. TERBUTALINE SULFATE [Concomitant]
     Indication: ASTHMA
     Route: 055
  5. VERAPAMIL [Concomitant]
     Indication: BLOOD PRESSURE ABNORMAL
     Route: 065
     Dates: start: 20000303

REACTIONS (5)
  - ASTHMA [None]
  - FEELING ABNORMAL [None]
  - SWELLING FACE [None]
  - SWOLLEN TONGUE [None]
  - TREMOR [None]
